FAERS Safety Report 9494421 (Version 1)
Quarter: 2013Q3

REPORT INFORMATION
  Report Type: Spontaneous
  Country: US (occurrence: None)
  Receive Date: 20130828
  Receipt Date: 20130828
  Transmission Date: 20140515
  Serious: Yes (Other)
  Sender: FDA-Public Use
  Company Number: SYM-2013-09322

PATIENT
  Sex: Female

DRUGS (1)
  1. NIFEDICAL XL [Suspect]
     Indication: BLOOD PRESSURE

REACTIONS (2)
  - Breast cancer [None]
  - Oedema peripheral [None]
